FAERS Safety Report 9341002 (Version 3)
Quarter: 2013Q2

REPORT INFORMATION
  Report Type: Spontaneous
  Country: GB (occurrence: None)
  Receive Date: 20130530
  Receipt Date: 20130618
  Transmission Date: 20140414
  Serious: Yes (Hospitalization)
  Sender: FDA-Public Use
  Company Number: 2013036283

PATIENT
  Age: 53 Year
  Sex: Male

DRUGS (1)
  1. PRIVIGEN [Suspect]
     Indication: IMMUNODEFICIENCY COMMON VARIABLE
     Route: 042
     Dates: start: 20130520, end: 20130520

REACTIONS (6)
  - Pain [None]
  - Oropharyngeal pain [None]
  - Malaise [None]
  - Influenza like illness [None]
  - Pain [None]
  - Adverse drug reaction [None]
